FAERS Safety Report 15553360 (Version 2)
Quarter: 2018Q4

REPORT INFORMATION
  Report Type: Report from Study
  Country: None (occurrence: US)
  Receive Date: 20181026
  Receipt Date: 20181218
  Transmission Date: 20190205
  Serious: Yes (Other)
  Sender: FDA-Public Use
  Company Number: US-ABBVIE-18K-163-2527022-00

PATIENT
  Age: 55 Year
  Sex: Female
  Weight: 126.21 kg

DRUGS (1)
  1. HUMIRA [Suspect]
     Active Substance: ADALIMUMAB
     Indication: RHEUMATOID ARTHRITIS
     Route: 058

REACTIONS (4)
  - Arthralgia [Unknown]
  - Tendon rupture [Recovering/Resolving]
  - Osteophyte fracture [Recovering/Resolving]
  - Post procedural infection [Recovered/Resolved]
